FAERS Safety Report 20488507 (Version 1)
Quarter: 2022Q1

REPORT INFORMATION
  Report Type: Spontaneous
  Country: DE (occurrence: DE)
  Receive Date: 20220218
  Receipt Date: 20220218
  Transmission Date: 20220423
  Serious: Yes (Other)
  Sender: FDA-Public Use
  Company Number: DE-NOVARTISPH-NVSC2020DE347888

PATIENT
  Sex: Female

DRUGS (2)
  1. ILARIS [Suspect]
     Active Substance: CANAKINUMAB
     Indication: Cryopyrin associated periodic syndrome
     Dosage: UNK, STARTED ABOUT 1 YEAR AGO
     Route: 065
  2. ILARIS [Suspect]
     Active Substance: CANAKINUMAB
     Dosage: UNK
     Route: 065
     Dates: start: 20220131

REACTIONS (11)
  - Cryopyrin associated periodic syndrome [Unknown]
  - Lymphadenopathy [Not Recovered/Not Resolved]
  - Lymph node pain [Not Recovered/Not Resolved]
  - Headache [Not Recovered/Not Resolved]
  - Rash erythematous [Unknown]
  - Malaise [Unknown]
  - Urticaria [Unknown]
  - Condition aggravated [Unknown]
  - Alopecia [Unknown]
  - Trichorrhexis [Unknown]
  - Stress [Unknown]

NARRATIVE: CASE EVENT DATE: 20220201
